FAERS Safety Report 20021686 (Version 1)
Quarter: 2021Q4

REPORT INFORMATION
  Report Type: Spontaneous
  Country: US (occurrence: US)
  Receive Date: 20211101
  Receipt Date: 20211101
  Transmission Date: 20220303
  Serious: Yes (Other)
  Sender: FDA-Public Use
  Company Number: US-TEVA-2021-US-1972536

PATIENT
  Age: 64 Year
  Sex: Male

DRUGS (6)
  1. IFOSFAMIDE [Suspect]
     Active Substance: IFOSFAMIDE
     Indication: Hodgkin^s disease
     Route: 065
  2. BENDAMUSTINE [Suspect]
     Active Substance: BENDAMUSTINE
     Indication: Hodgkin^s disease
     Route: 065
  3. CARBOPLATIN [Suspect]
     Active Substance: CARBOPLATIN
     Indication: Hodgkin^s disease
     Route: 065
  4. ETOPOSIDE [Suspect]
     Active Substance: ETOPOSIDE
     Indication: Hodgkin^s disease
     Route: 065
  5. BRENTUXIMAB VEDOTIN [Suspect]
     Active Substance: BRENTUXIMAB VEDOTIN
     Indication: Hodgkin^s disease
     Route: 065
  6. NIVOLUMAB [Suspect]
     Active Substance: NIVOLUMAB
     Indication: Hodgkin^s disease
     Route: 065

REACTIONS (3)
  - Lumbar radiculopathy [Recovered/Resolved]
  - Hepatotoxicity [Unknown]
  - Treatment failure [Unknown]
